FAERS Safety Report 7451892-3 (Version None)
Quarter: 2011Q2

REPORT INFORMATION
  Report Type: 
  Country: None (occurrence: None)
  Receive Date: 20110425
  Receipt Date: 20110419
  Transmission Date: 20111010
  Serious: Yes (Other)
  Sender: FDA-Public Use
  Company Number: 2011SP015597

PATIENT
  Age: 38 Year
  Sex: Female

DRUGS (5)
  1. RITONAVIR [Suspect]
     Indication: ANTIRETROVIRAL THERAPY
  2. DESOGEN [Suspect]
     Indication: MENORRHAGIA
     Dosage: 75 MCG;QD
     Dates: start: 20100201, end: 20100501
  3. TENOFOVIR DISOPROXIL FUMARATE [Concomitant]
  4. LOPINAVIR [Concomitant]
  5. EMTRICITABINE [Concomitant]

REACTIONS (3)
  - DRUG INTERACTION [None]
  - THERAPEUTIC RESPONSE UNEXPECTED [None]
  - VIROLOGIC FAILURE [None]
